FAERS Safety Report 17073855 (Version 1)
Quarter: 2019Q4

REPORT INFORMATION
  Report Type: Spontaneous
  Country: US (occurrence: US)
  Receive Date: 20191126
  Receipt Date: 20191126
  Transmission Date: 20200122
  Serious: No
  Sender: FDA-Public Use
  Company Number: US-ALVOGEN-2019-ALVOGEN-101211

PATIENT
  Age: 75 Year
  Sex: Female

DRUGS (10)
  1. COENZYME Q10 [Suspect]
     Active Substance: UBIDECARENONE
     Indication: SUPPLEMENTATION THERAPY
     Dosage: ONCE DAILY
     Route: 048
     Dates: start: 2009, end: 20190620
  2. ATENOLOL. [Suspect]
     Active Substance: ATENOLOL
     Indication: HYPERTENSION
     Dosage: ONCE DAILY
     Route: 048
     Dates: end: 201902
  3. BISOPROLOL [Suspect]
     Active Substance: BISOPROLOL
     Indication: FEELING OF RELAXATION
     Dosage: DAILY
     Route: 048
     Dates: start: 201902, end: 20190620
  4. ATENOLOL. [Suspect]
     Active Substance: ATENOLOL
     Indication: CARDIAC MURMUR
     Dosage: ONCE DAILY
     Route: 048
     Dates: end: 201902
  5. SIMVASTATIN. [Concomitant]
     Active Substance: SIMVASTATIN
     Indication: PRODUCT USED FOR UNKNOWN INDICATION
  6. GLUCOSAMINE [Concomitant]
     Active Substance: GLUCOSAMINE
     Indication: PRODUCT USED FOR UNKNOWN INDICATION
  7. AMIODARONE [Concomitant]
     Active Substance: AMIODARONE
     Indication: HEART RATE
  8. LISINOPRIL. [Suspect]
     Active Substance: LISINOPRIL
     Indication: HYPERTENSION
     Dosage: DAILY
     Route: 048
     Dates: end: 201902
  9. LUTEIN [Suspect]
     Active Substance: LUTEIN
     Indication: SUPPLEMENTATION THERAPY
     Dosage: 20 MG, ONCE DAILY
     Route: 048
     Dates: start: 2009, end: 20190620
  10. CRANBERRY FRUIT CONCENTRATE WITH VITAMIN C AND E [Suspect]
     Active Substance: DIETARY SUPPLEMENT
     Indication: SUPPLEMENTATION THERAPY
     Dosage: 4200 MG, ONCE DAILY
     Route: 048
     Dates: start: 2009, end: 20190620

REACTIONS (4)
  - Dizziness [Unknown]
  - Asthenia [Recovering/Resolving]
  - Hypotension [Recovering/Resolving]
  - Orthostatic hypotension [Unknown]

NARRATIVE: CASE EVENT DATE: 201902
